FAERS Safety Report 20149574 (Version 2)
Quarter: 2022Q1

REPORT INFORMATION
  Report Type: Spontaneous
  Country: NL (occurrence: NL)
  Receive Date: 20211205
  Receipt Date: 20220202
  Transmission Date: 20220423
  Serious: Yes (Other)
  Sender: FDA-Public Use
  Company Number: NL-CELLTRION INC.-2021NL016178

PATIENT

DRUGS (1)
  1. RITUXIMAB [Suspect]
     Active Substance: RITUXIMAB
     Indication: Polymyalgia rheumatica
     Dosage: SINGLE INTRAVENOUS INFUSION OF RITUXIMAB 1000 MG
     Route: 042

REACTIONS (3)
  - Pulmonary embolism [Unknown]
  - Product use in unapproved indication [Unknown]
  - Off label use [Unknown]
